FAERS Safety Report 8228713-4 (Version None)
Quarter: 2012Q1

REPORT INFORMATION
  Report Type: 
  Country: None (occurrence: None)
  Receive Date: 20120322
  Receipt Date: 20120319
  Transmission Date: 20120608
  Serious: Yes (Other)
  Sender: FDA-Public Use
  Company Number: US-PFIZER INC-2011223412

PATIENT
  Sex: Female
  Weight: 82 kg

DRUGS (8)
  1. NEURONTIN [Suspect]
     Dosage: 200 MG, 3X/DAY
     Route: 048
     Dates: start: 20111101
  2. LOPERAMIDE HCL [Suspect]
     Indication: DIARRHOEA
     Dosage: 2 MG, AS NEEDED
  3. CARTIA XT [Concomitant]
     Indication: HYPERTENSION
     Dosage: 240 MG, 1X/DAY
     Route: 048
  4. NEURONTIN [Suspect]
     Indication: PAIN IN EXTREMITY
     Dosage: 100 MG, 3X/DAY
     Route: 048
     Dates: start: 20110913, end: 20111101
  5. ZYRTEC [Concomitant]
     Indication: ALLERGY TO CHEMICALS
     Dosage: 10 MG, AS NEEDED
  6. NEURONTIN [Suspect]
     Dosage: 100MG IN MORNING, 100MG IN AFTERNOON, TWO CAPSULES OF 100MG AT NIGHT
     Route: 048
     Dates: start: 20111101, end: 20111101
  7. VALSARTAN [Concomitant]
     Indication: HYPERTENSION
     Dosage: 160 MG, 1X/DAY
  8. PRAVASTATIN [Concomitant]
     Indication: BLOOD CHOLESTEROL INCREASED
     Dosage: 40 MG, 1X/DAY

REACTIONS (5)
  - DRUG EFFECT DECREASED [None]
  - FLATULENCE [None]
  - SOMNOLENCE [None]
  - DIARRHOEA [None]
  - PAIN [None]
